FAERS Safety Report 11343239 (Version 1)
Quarter: 2015Q3

REPORT INFORMATION
  Report Type: Spontaneous
  Country: DE (occurrence: DE)
  Receive Date: 20150806
  Receipt Date: 20150806
  Transmission Date: 20151125
  Serious: Yes (Other)
  Sender: FDA-Public Use
  Company Number: DE-DRREDDYS-GER/GER/15/0049753

PATIENT
  Age: 1 Day
  Sex: Male
  Weight: 3.88 kg

DRUGS (2)
  1. LAMOTRIGINE. [Suspect]
     Active Substance: LAMOTRIGINE
     Indication: PRODUCT USED FOR UNKNOWN INDICATION
     Route: 064
     Dates: start: 20140911, end: 20150621
  2. ORFIRIL LONG RETARD [Suspect]
     Active Substance: VALPROIC ACID
     Indication: PRODUCT USED FOR UNKNOWN INDICATION
     Dosage: 150-0-300
     Route: 064
     Dates: start: 20140911, end: 20150621

REACTIONS (5)
  - Respiratory disorder neonatal [Recovered/Resolved]
  - Moaning [None]
  - Foetal exposure during pregnancy [Unknown]
  - Neonatal tachypnoea [None]
  - Oxygen saturation decreased [Recovered/Resolved]

NARRATIVE: CASE EVENT DATE: 20150621
